FAERS Safety Report 7581048-5 (Version None)
Quarter: 2011Q2

REPORT INFORMATION
  Report Type: 
  Country: None (occurrence: None)
  Receive Date: 20110629
  Receipt Date: 20110620
  Transmission Date: 20111010
  Serious: Yes (Hospitalization)
  Sender: FDA-Public Use
  Company Number: US-BAXTER-2011BH020309

PATIENT
  Age: 47 Year
  Sex: Female

DRUGS (2)
  1. DIANEAL [Suspect]
     Indication: PERITONEAL DIALYSIS
     Route: 033
     Dates: end: 20110612
  2. DIANEAL [Suspect]
     Route: 033
     Dates: start: 20110601

REACTIONS (4)
  - HEAD INJURY [None]
  - FALL [None]
  - LOSS OF CONSCIOUSNESS [None]
  - HYPOTENSION [None]
